FAERS Safety Report 15235477 (Version 1)
Quarter: 2018Q3

REPORT INFORMATION
  Report Type: Spontaneous
  Country: BG (occurrence: BG)
  Receive Date: 20180803
  Receipt Date: 20180803
  Transmission Date: 20181010
  Serious: Yes (Hospitalization)
  Sender: FDA-Public Use
  Company Number: BG-ACCORD-070370

PATIENT
  Age: 49 Year
  Sex: Male

DRUGS (1)
  1. FLUOROURACIL. [Suspect]
     Active Substance: FLUOROURACIL
     Indication: ADENOCARCINOMA OF COLON
     Route: 041

REACTIONS (4)
  - Chest pain [Recovered/Resolved]
  - Cardiogenic shock [Recovered/Resolved]
  - Dyspnoea [Recovered/Resolved]
  - Cardiotoxicity [Recovered/Resolved]
